FAERS Safety Report 6779295-5 (Version None)
Quarter: 2010Q2

REPORT INFORMATION
  Report Type: 
  Country: None (occurrence: None)
  Receive Date: 20100618
  Receipt Date: 20100608
  Transmission Date: 20101027
  Serious: Yes (Hospitalization)
  Sender: FDA-Public Use
  Company Number: US-SANOFI-AVENTIS-2010SA033391

PATIENT
  Age: 93 Year
  Sex: Male

DRUGS (2)
  1. LOVENOX [Suspect]
     Route: 065
     Dates: start: 20100513, end: 20100515
  2. COUMADIN [Concomitant]
     Dates: start: 20100101

REACTIONS (1)
  - ABDOMINAL PAIN [None]
